FAERS Safety Report 6895359-X (Version None)
Quarter: 2010Q3

REPORT INFORMATION
  Report Type: 
  Country: None (occurrence: None)
  Receive Date: 20100728
  Receipt Date: 20100715
  Transmission Date: 20110219
  Serious: Yes (Other)
  Sender: FDA-Public Use
  Company Number: WAES 1004USA00474B1

PATIENT
  Sex: Female
  Weight: 0.7 kg

DRUGS (5)
  1. ISENTRESS [Suspect]
     Indication: HIV INFECTION
     Dosage: 800
  2. NORVIR [Suspect]
     Dosage: 100
  3. PREZISTA [Suspect]
     Dosage: 800 MG/DAILY/TRANSPLACENTAL
     Route: 064
  4. TRUVADA [Suspect]
     Dosage: 500 MG/DAILY/TRANSPLACENTAL
     Route: 064
  5. ZIDOVUDINE [Suspect]
     Dosage: TRANSPLACENTAL
     Route: 064

REACTIONS (2)
  - MATERNAL DRUGS AFFECTING FOETUS [None]
  - PREMATURE BABY [None]
